FAERS Safety Report 10195953 (Version 1)
Quarter: 2014Q2

REPORT INFORMATION
  Report Type: Spontaneous
  Country: US (occurrence: None)
  Receive Date: 20140522
  Receipt Date: 20140522
  Transmission Date: 20141212
  Serious: Yes (Hospitalization)
  Sender: FDA-Public Use
  Company Number: UNT-2014-000232

PATIENT
  Age: 47 Year
  Sex: Female
  Weight: 52.2 kg

DRUGS (2)
  1. REMODULIN [Suspect]
     Indication: COR PULMONALE CHRONIC
     Route: 058
     Dates: start: 20131105
  2. ADCIRCA (TADALAFIL) [Concomitant]

REACTIONS (1)
  - Abdominal pain [None]
